FAERS Safety Report 8533728-2 (Version None)
Quarter: 2012Q3

REPORT INFORMATION
  Report Type: 
  Country: None (occurrence: None)
  Receive Date: 20120724
  Receipt Date: 20120711
  Transmission Date: 20120928
  Serious: Yes (Hospitalization)
  Sender: FDA-Public Use
  Company Number: JP-UCBSA-062117

PATIENT
  Age: 56 Year
  Sex: Female

DRUGS (15)
  1. CANDESARTAN CILEXETIL [Concomitant]
     Dates: end: 20120706
  2. BENIDIPINE HYDROCHLORIDE [Concomitant]
     Dates: end: 20120706
  3. RHEUMATREX [Suspect]
     Indication: RHEUMATOID ARTHRITIS
     Route: 048
     Dates: start: 20120420, end: 20120708
  4. FOLIAMIN [Suspect]
     Indication: PROPHYLAXIS
     Route: 048
     Dates: start: 20120227, end: 20120708
  5. LOXONIN [Suspect]
     Route: 048
     Dates: start: 20120110, end: 20120710
  6. LANSOPRAZOLE [Suspect]
     Indication: GASTRITIS
     Route: 048
     Dates: start: 20120223
  7. ZOLPIDEM [Suspect]
     Indication: INSOMNIA
     Route: 048
     Dates: start: 20120403
  8. ISONIAZID [Suspect]
     Indication: ANTIBIOTIC PROPHYLAXIS
     Route: 048
     Dates: start: 20120201
  9. CILOSTAZOL [Concomitant]
     Dates: start: 20110805, end: 20120706
  10. MUCOSTA [Suspect]
     Indication: GASTRITIS PROPHYLAXIS
     Route: 048
     Dates: start: 20120127, end: 20120710
  11. LOXONIN [Suspect]
     Indication: RHEUMATOID ARTHRITIS
     Dosage: AS NECESSARY AT BEDTIME
     Route: 062
     Dates: start: 20120201
  12. CIMZIA [Suspect]
     Indication: RHEUMATOID ARTHRITIS
     Route: 058
     Dates: start: 20120223, end: 20120101
  13. CYANOCOBALAMIN [Suspect]
     Indication: PROPHYLAXIS
     Dosage: 3 DOSAGE FORMS DAILY
     Route: 048
     Dates: start: 20120201
  14. LIMAPROST [Concomitant]
     Dates: start: 20111013, end: 20120706
  15. EPERISONE HYDROCHLORIDE [Concomitant]
     Dates: start: 20111013, end: 20120706

REACTIONS (1)
  - LUNG DISORDER [None]
